FAERS Safety Report 5332308-X (Version None)
Quarter: 2007Q2

REPORT INFORMATION
  Report Type: 
  Country: None (occurrence: None)
  Receive Date: 20070521
  Receipt Date: 20070521
  Transmission Date: 20071010
  Serious: Yes (Hospitalization)
  Sender: FDA-Public Use
  Company Number: None

PATIENT
  Sex: Female
  Weight: 81.7382 kg

DRUGS (1)
  1. WINRHO [Suspect]
     Indication: IDIOPATHIC THROMBOCYTOPENIC PURPURA
     Dosage: 6000MCG X1 IV
     Route: 042
     Dates: start: 20070420, end: 20070420

REACTIONS (4)
  - CHILLS [None]
  - HAEMOGLOBINURIA [None]
  - HAEMOLYSIS [None]
  - HYPOTENSION [None]
